FAERS Safety Report 13414116 (Version 2)
Quarter: 2017Q2

REPORT INFORMATION
  Report Type: Spontaneous
  Country: CA (occurrence: CA)
  Receive Date: 20170407
  Receipt Date: 20170418
  Transmission Date: 20170830
  Serious: Yes (Life-Threatening, Hospitalization, Other)
  Sender: FDA-Public Use
  Company Number: CA-SA-2017SA058442

PATIENT
  Age: 49 Year
  Sex: Male

DRUGS (10)
  1. CHLORAMBUCIL [Suspect]
     Active Substance: CHLORAMBUCIL
     Indication: CHRONIC LYMPHOCYTIC LEUKAEMIA REFRACTORY
     Route: 065
  2. IBRUTINIB [Suspect]
     Active Substance: IBRUTINIB
     Indication: CHRONIC LYMPHOCYTIC LEUKAEMIA REFRACTORY
     Route: 065
  3. RITUXIMAB [Suspect]
     Active Substance: RITUXIMAB
     Indication: CHRONIC LYMPHOCYTIC LEUKAEMIA REFRACTORY
     Route: 065
  4. CYCLOPHOSPHAMIDE. [Suspect]
     Active Substance: CYCLOPHOSPHAMIDE
     Indication: CHRONIC LYMPHOCYTIC LEUKAEMIA REFRACTORY
     Route: 065
  5. TRIMETHOPRIM/SULFAMETHOXAZOLE [Concomitant]
     Indication: PROPHYLAXIS
  6. FLUDARABINE PHOSPHATE. [Suspect]
     Active Substance: FLUDARABINE PHOSPHATE
     Indication: CHRONIC LYMPHOCYTIC LEUKAEMIA REFRACTORY
     Route: 065
  7. DEXAMETHASONE. [Suspect]
     Active Substance: DEXAMETHASONE
     Indication: CHRONIC LYMPHOCYTIC LEUKAEMIA REFRACTORY
     Dosage: DOSE: HIGH DOSE
     Route: 065
  8. POSACONAZOLE [Concomitant]
     Active Substance: POSACONAZOLE
     Indication: PROPHYLAXIS
  9. VALACICLOVIR [Concomitant]
     Active Substance: VALACYCLOVIR HYDROCHLORIDE
     Indication: PROPHYLAXIS
  10. ALEMTUZUMAB [Suspect]
     Active Substance: ALEMTUZUMAB
     Indication: CHRONIC LYMPHOCYTIC LEUKAEMIA REFRACTORY
     Route: 065

REACTIONS (13)
  - Microsporidia infection [Recovering/Resolving]
  - Pyrexia [Recovered/Resolved]
  - Muscular weakness [Recovered/Resolved]
  - Pyrexia [Unknown]
  - Pseudomonas infection [Unknown]
  - Treatment failure [Unknown]
  - Pneumonia [Unknown]
  - Polymyositis [Recovered/Resolved]
  - Cardiac failure congestive [Recovered/Resolved]
  - Myositis [Recovered/Resolved]
  - Myalgia [Recovered/Resolved]
  - Device related infection [Unknown]
  - Lymphopenia [Unknown]
